FAERS Safety Report 9445514 (Version 1)
Quarter: 2013Q3

REPORT INFORMATION
  Report Type: Spontaneous
  Country: IT (occurrence: IT)
  Receive Date: 20130807
  Receipt Date: 20130807
  Transmission Date: 20140515
  Serious: Yes (Hospitalization)
  Sender: FDA-Public Use
  Company Number: IT-PERRIGO-13IT008000

PATIENT
  Age: 79 Year
  Sex: Male

DRUGS (2)
  1. INDOMETHACIN USP RX 75 MG 6J9 [Suspect]
     Indication: BACK PAIN
     Dosage: 100 MG, QD
     Route: 048
     Dates: start: 201005, end: 201005
  2. HYDROCHLOROTHIAZIDE W/ LISINOPRIL DIHYDRATE [Concomitant]
     Indication: HYPERTENSION
     Dosage: 12.5/20 MG, QD
     Route: 048
     Dates: start: 1996

REACTIONS (5)
  - Portal vein thrombosis [Recovered/Resolved]
  - Nausea [Recovered/Resolved]
  - Vomiting [Recovered/Resolved]
  - Abdominal pain [Recovering/Resolving]
  - Haematochezia [Recovered/Resolved]
